FAERS Safety Report 21313826 (Version 1)
Quarter: 2022Q3

REPORT INFORMATION
  Report Type: Report from Study
  Country: US (occurrence: US)
  Receive Date: 20220909
  Receipt Date: 20220909
  Transmission Date: 20221026
  Serious: Yes (Hospitalization, Other)
  Sender: FDA-Public Use
  Company Number: US-BRISTOL-MYERS SQUIBB COMPANY-2022-032685

PATIENT
  Sex: Female

DRUGS (3)
  1. IPILIMUMAB [Suspect]
     Active Substance: IPILIMUMAB
     Indication: Transitional cell carcinoma
     Route: 065
     Dates: start: 20220210, end: 20220210
  2. NIVOLUMAB [Suspect]
     Active Substance: NIVOLUMAB
     Indication: Transitional cell carcinoma
     Route: 065
     Dates: start: 20220210, end: 20220210
  3. SACITUZUMAB GOVITECAN [Suspect]
     Active Substance: SACITUZUMAB GOVITECAN
     Indication: Transitional cell carcinoma
     Dosage: 2 DOSES
     Route: 065
     Dates: start: 20220210, end: 20220216

REACTIONS (2)
  - Pneumonia [Unknown]
  - Embolism [Unknown]

NARRATIVE: CASE EVENT DATE: 20220430
